FAERS Safety Report 23600049 (Version 1)
Quarter: 2024Q1

REPORT INFORMATION
  Report Type: Spontaneous
  Country: US (occurrence: US)
  Receive Date: 20240306
  Receipt Date: 20240306
  Transmission Date: 20240409
  Serious: Yes (Life-Threatening, Hospitalization, Other)
  Sender: FDA-Public Use
  Company Number: US-MLMSERVICE-20240216-4837417-1

PATIENT
  Age: 59 Year
  Sex: Female

DRUGS (2)
  1. MYCOPHENOLIC ACID [Suspect]
     Active Substance: MYCOPHENOLIC ACID
     Indication: Glomerulonephritis membranoproliferative
     Dosage: UNK
     Route: 065
  2. PREDNISONE [Concomitant]
     Active Substance: PREDNISONE
     Indication: Glomerulonephritis membranoproliferative
     Dosage: UNK
     Route: 065

REACTIONS (14)
  - Thrombocytopenia [Unknown]
  - Bacterial infection [Unknown]
  - Extravasation [Unknown]
  - Hepatic necrosis [Unknown]
  - Traumatic liver injury [Unknown]
  - Altered state of consciousness [Unknown]
  - Hepatic cirrhosis [Unknown]
  - Hepatic haemorrhage [Unknown]
  - Acute hepatic failure [Unknown]
  - Drug-induced liver injury [Unknown]
  - Systemic inflammatory response syndrome [Unknown]
  - Haemoperitoneum [Unknown]
  - Anaemia [Unknown]
  - Bacteraemia [Unknown]
